FAERS Safety Report 10696950 (Version 1)
Quarter: 2015Q1

REPORT INFORMATION
  Report Type: Spontaneous
  Country: US (occurrence: None)
  Receive Date: 20150107
  Receipt Date: 20150107
  Transmission Date: 20150721
  Serious: Yes (Life-Threatening, Hospitalization, Disabling)
  Sender: FDA-Public Use
  Company Number: None

PATIENT
  Age: 47 Year
  Sex: Male
  Weight: 95.26 kg

DRUGS (1)
  1. BCG [Suspect]
     Active Substance: BCG VACCINE
     Indication: BLADDER CANCER

REACTIONS (3)
  - Crohn^s disease [None]
  - Loss of employment [None]
  - Abdominal pain lower [None]
